FAERS Safety Report 9831778 (Version 2)
Quarter: 2014Q1

REPORT INFORMATION
  Report Type: Spontaneous
  Country: US (occurrence: US)
  Receive Date: 20140121
  Receipt Date: 20140210
  Transmission Date: 20141002
  Serious: Yes (Other)
  Sender: FDA-Public Use
  Company Number: US-PFIZER INC-2014013428

PATIENT
  Sex: Female

DRUGS (2)
  1. CELEBREX [Suspect]
     Indication: RHEUMATOID ARTHRITIS
     Dosage: 200 MG, 1X/DAY
     Dates: start: 201309
  2. PREDNISONE [Suspect]
     Indication: BRONCHITIS
     Dosage: 20 MG, 3X/DAY
     Dates: start: 201312

REACTIONS (7)
  - Cardiac failure congestive [Unknown]
  - Dyspnoea [Unknown]
  - Renal disorder [Unknown]
  - Nausea [Unknown]
  - Visual impairment [Unknown]
  - Swelling face [Unknown]
  - Eye swelling [Unknown]
